FAERS Safety Report 5229786-3 (Version None)
Quarter: 2007Q1

REPORT INFORMATION
  Report Type: 
  Country: None (occurrence: None)
  Receive Date: 20070206
  Receipt Date: 20070126
  Transmission Date: 20070707
  Serious: Yes (Hospitalization, Other)
  Sender: FDA-Public Use
  Company Number: JP-PFIZER INC-2006154549

PATIENT
  Sex: Female

DRUGS (5)
  1. LIPITOR [Suspect]
     Indication: HYPERLIPIDAEMIA
     Dosage: DAILY DOSE:5MG
     Route: 048
     Dates: start: 20060616, end: 20061124
  2. AMLODIPINE BESYLATE [Concomitant]
     Dosage: DAILY DOSE:5MG
     Route: 048
  3. EPADEL [Concomitant]
     Route: 048
  4. BLOPRESS [Concomitant]
     Dosage: DAILY DOSE:8MG
  5. PLETAL [Concomitant]
     Route: 048

REACTIONS (2)
  - EYELID PTOSIS [None]
  - MYALGIA [None]
